FAERS Safety Report 12873366 (Version 1)
Quarter: 2016Q4

REPORT INFORMATION
  Report Type: Spontaneous
  Country: US (occurrence: US)
  Receive Date: 20161021
  Receipt Date: 20161021
  Transmission Date: 20170207
  Serious: No
  Sender: FDA-Public Use
  Company Number: US-ALLERGAN-1524048US

PATIENT
  Age: 73 Year
  Sex: Male

DRUGS (4)
  1. FML [Suspect]
     Active Substance: FLUOROMETHOLONE
     Indication: OCULAR HYPERAEMIA
     Dosage: UNK
     Route: 047
     Dates: start: 201506, end: 201506
  2. FML [Suspect]
     Active Substance: FLUOROMETHOLONE
     Indication: EYE SWELLING
  3. ZIOPTAN [Concomitant]
     Active Substance: TAFLUPROST
     Indication: PRODUCT USED FOR UNKNOWN INDICATION
     Dosage: 0.001 UNK, UNK
     Route: 047
  4. TIMOLOL MALEATE. [Concomitant]
     Active Substance: TIMOLOL MALEATE
     Indication: PRODUCT USED FOR UNKNOWN INDICATION
     Route: 047

REACTIONS (3)
  - Eye irritation [Unknown]
  - Product contamination physical [Unknown]
  - Eye pain [Recovered/Resolved]

NARRATIVE: CASE EVENT DATE: 201506
